FAERS Safety Report 5319837-X (Version None)
Quarter: 2007Q2

REPORT INFORMATION
  Report Type: 
  Country: None (occurrence: None)
  Receive Date: 20070509
  Receipt Date: 20070430
  Transmission Date: 20071010
  Serious: Yes (Other)
  Sender: FDA-Public Use
  Company Number: PHEH2006US08632

PATIENT
  Sex: Male

DRUGS (5)
  1. TRILEPTAL [Suspect]
     Indication: BIPOLAR I DISORDER
     Dosage: 150 MG, TID
  2. TRILEPTAL [Suspect]
     Dosage: 300 MG, QD
  3. TRILEPTAL [Suspect]
     Dosage: 75 MG, TID
  4. ABILIFY [Concomitant]
     Dosage: 5 MG, QD
  5. LITHIUM CARBONATE [Concomitant]
     Dosage: 300 MG, BID

REACTIONS (3)
  - INSOMNIA [None]
  - PARTIAL SEIZURES [None]
  - THERAPEUTIC RESPONSE UNEXPECTED [None]
